FAERS Safety Report 8968004 (Version 4)
Quarter: 2013Q3

REPORT INFORMATION
  Report Type: Report from Study
  Country: US (occurrence: US)
  Receive Date: 20121217
  Receipt Date: 20130816
  Transmission Date: 20140515
  Serious: Yes (Death, Hospitalization)
  Sender: FDA-Public Use
  Company Number: US-PFIZER INC-2012311824

PATIENT
  Age: 11 Year
  Sex: Male
  Weight: 32 kg

DRUGS (46)
  1. TEMSIROLIMUS [Suspect]
     Indication: NEOPLASM
     Dosage: 35 MG/M2,  DOSE OVER 30 MINUTES ON DAYS 1 + 8 (CYCLE= 21 DAYS; MAX= 12 MONTHS
     Route: 042
     Dates: start: 20110823, end: 20110916
  2. IRINOTECAN HCL [Suspect]
     Indication: NEOPLASM
     Dosage: 50 MG/M2,  DAYS 1-5, CYCLE= 21 DAYS: (MAX= 12 MONTHS)
     Route: 042
     Dates: start: 20110823, end: 20110920
  3. TEMOZOLOMIDE [Suspect]
     Indication: NEOPLASM
     Dosage: 100 MG/M2, DAYS 1-5, CYCLE= 21 DAYS: (MAX= 12 MONTHS)
     Route: 048
     Dates: start: 20110823, end: 20110920
  4. BACTRIM [Concomitant]
     Indication: PROPHYLAXIS
     Dosage: 1 DF (400-80 MG), 2X/DAY ON FRIDAY, SATURDAY AND SUNDAY
     Route: 048
  5. OXYCONTIN [Concomitant]
     Indication: PAIN
     Dosage: 10 MG, 2X/DAY (EVERY 12 HOURS)
     Route: 048
  6. OXYCODONE [Concomitant]
     Indication: PAIN
     Dosage: 7 MG, EVERY 4 HRS AS NEEDED
     Route: 048
  7. OXYCODONE [Concomitant]
     Dosage: 5 MG, EVERY 4 HRS, AS NEEDED
     Route: 048
  8. MORPHINE [Concomitant]
     Indication: PAIN
     Dosage: 2 MG, EVERY 3 HOURS AS NEEDED
     Route: 042
  9. RANITIDINE [Concomitant]
     Dosage: 150 MG, 2X/DAY (EVERY 12 HOURS)
     Route: 042
  10. NIFEDIPINE [Concomitant]
     Indication: HYPERTENSION
     Dosage: 10 MG, EVERY 4 HRS (AS NEEDED FOR BP}120/80)
     Route: 048
  11. MIRALAX [Concomitant]
     Indication: CONSTIPATION
     Dosage: 17 G, 1X/DAY
     Route: 048
  12. COLACE [Concomitant]
     Indication: CONSTIPATION
     Dosage: 50 MG, 2X/DAY (EVERY 12 HOURS)
     Route: 048
  13. FLAGYL [Concomitant]
     Indication: PROPHYLAXIS
     Dosage: 250 MG, 4X/DAY (EVERY 6 HOURS)
     Route: 042
  14. FLAGYL [Concomitant]
     Dosage: 250 MG, 4X/DAY (EVERY 6 HOURS)
     Route: 048
  15. NEXIUM [Concomitant]
     Dosage: 20 MG, 2X/DAY (EVERY 12 HOURS)
     Route: 042
  16. NEURONTIN [Concomitant]
     Indication: NEUROPATHY PERIPHERAL
     Dosage: 200 MG, 2X/DAY (EVERY 12 HOURS)
     Route: 048
  17. LACTULOSE [Concomitant]
     Dosage: 20 ML, 2X/DAY
     Route: 048
  18. PEPCID [Concomitant]
     Dosage: 30 MG, DAILY
     Route: 048
  19. MAGNESIUM CITRATE [Concomitant]
     Indication: CONSTIPATION
     Dosage: 150 ML, EVERY 4 HRS X 3 DOSES
     Route: 048
  20. PREVACID [Concomitant]
     Dosage: 30 MG, 2X/DAY (EVERY 12 HOURS)
     Route: 048
  21. FLEET ENEMA [Concomitant]
     Indication: CONSTIPATION
     Dosage: ONCE
  22. BENADRYL [Concomitant]
     Indication: PREMEDICATION
     Dosage: 25 MG, (EVERY 6 HOURS AS NEEDED)
     Route: 048
  23. TYLENOL [Concomitant]
     Indication: PREMEDICATION
     Dosage: 475 MG, (EVERY 6 HOURS AS NEEDED)
     Route: 048
  24. CARAFATE [Concomitant]
     Indication: GASTROINTESTINAL DISORDER
     Dosage: 1 G, 3X/DAY (EVERY 8 HOURS)
     Route: 048
  25. CARAFATE [Concomitant]
     Indication: ABDOMINAL PAIN
  26. FERROUS SULFATE [Concomitant]
     Dosage: 100 MG, DAILY
     Route: 048
  27. ZOFRAN [Concomitant]
     Indication: NAUSEA
     Dosage: 4 MG, 3X/DAY (EVERY 8 HOURS)
     Route: 042
  28. VISTARIL [Concomitant]
     Indication: NAUSEA
     Dosage: 25 MG, 4X/DAY (EVERY 6 HOURS AS NEEDED)
     Route: 048
  29. VISTARIL [Concomitant]
     Indication: VOMITING
  30. ZOSYN [Concomitant]
     Indication: PYREXIA
     Dosage: 3.375 G, 4X/DAY (EVERY 6 HOURS)
     Route: 042
  31. ACTIGALL [Concomitant]
     Dosage: 300 MG, 2X/DAY (EVERY 12 HOURS)
     Route: 048
  32. LASIX [Concomitant]
     Indication: WEIGHT INCREASED
     Dosage: 40 MG, 2X/DAY (EVERY 12 HOURS)
     Route: 042
  33. LASIX [Concomitant]
     Indication: FLUID RETENTION
  34. ALBUMIN [Concomitant]
     Indication: WEIGHT INCREASED
     Dosage: (25 %) 25 G, SINGLE
     Route: 042
  35. ALBUMIN [Concomitant]
     Indication: FLUID RETENTION
  36. LOVENOX [Concomitant]
     Indication: PROPHYLAXIS
     Dosage: 30 MG, 2X/DAY (EVERY 12 HOURS)
     Route: 058
  37. ATIVAN [Concomitant]
     Indication: ANXIETY
     Dosage: 0.5 MG, 4X/DAY (EVERY 6 HOURS AS NEEDED)
     Route: 042
  38. ALDACTONE [Concomitant]
     Indication: WEIGHT INCREASED
     Dosage: 50 MG, DAILY
     Route: 048
  39. ALDACTONE [Concomitant]
     Indication: FLUID RETENTION
  40. ALDACTONE [Concomitant]
     Indication: DIURETIC THERAPY
  41. ZANTAC [Concomitant]
     Dosage: 2 TEASPOONFUL (15 MG/ML), 2X/DAY
     Route: 048
  42. AMLODIPINE [Concomitant]
     Dosage: 5 MG, 2X/DAY
     Route: 048
  43. SODIUM CHLORIDE [Concomitant]
     Dosage: 1 G, 2X/DAY
     Route: 048
  44. GASTROGRAFIN [Concomitant]
     Dosage: 25 ML, ONCE
     Route: 048
  45. POTASSIUM CHLORIDE [Concomitant]
     Dosage: 16 MEQ, ONCE
     Route: 042
  46. PHYTONADIONE [Concomitant]
     Dosage: 5 MG, SINGLE
     Route: 042

REACTIONS (10)
  - Disease progression [Fatal]
  - Hepatocellular carcinoma [Fatal]
  - Blood bilirubin increased [Not Recovered/Not Resolved]
  - Testicular disorder [Not Recovered/Not Resolved]
  - Testicular pain [Not Recovered/Not Resolved]
  - Alanine aminotransferase increased [Recovered/Resolved]
  - Blood alkaline phosphatase increased [Not Recovered/Not Resolved]
  - Aspartate aminotransferase increased [Not Recovered/Not Resolved]
  - Abdominal pain [Not Recovered/Not Resolved]
  - Ascites [Not Recovered/Not Resolved]
